FAERS Safety Report 24066596 (Version 1)
Quarter: 2024Q3

REPORT INFORMATION
  Report Type: Spontaneous
  Country: GR (occurrence: GR)
  Receive Date: 20240709
  Receipt Date: 20240709
  Transmission Date: 20241017
  Serious: Yes (Other)
  Sender: PFIZER
  Company Number: GR-PFIZER INC-PV202400087861

PATIENT
  Age: 55 Year
  Sex: Female

DRUGS (5)
  1. DOXORUBICIN HYDROCHLORIDE [Suspect]
     Active Substance: DOXORUBICIN HYDROCHLORIDE
     Indication: Acute myelomonocytic leukaemia
     Dosage: 80 MG/D FOR 3 DAYS
     Route: 042
  2. CYTARABINE [Suspect]
     Active Substance: CYTARABINE
     Indication: Acute myelomonocytic leukaemia
     Dosage: 160 MG, 2X/DAY (EVERY 12 HOURS BY CONTINUOUS INFUSION FOR 7 DAYS)
  3. VINCRISTINE SULFATE [Suspect]
     Active Substance: VINCRISTINE SULFATE
     Indication: Acute myelomonocytic leukaemia
     Dosage: 1.5 MG, ON DAYS 1 AND 7 (CYCLIC)
     Route: 042
  4. METHYLPREDNISOLONE [Suspect]
     Active Substance: METHYLPREDNISOLONE
     Indication: Acute myelomonocytic leukaemia
     Dosage: 48 MG, DAILY
     Route: 048
  5. THIOGUANINE [Suspect]
     Active Substance: THIOGUANINE
     Indication: Acute myelomonocytic leukaemia
     Dosage: 200 MG/D GIVEN FOR 7 DAYS
     Route: 048

REACTIONS (1)
  - Rhabdomyolysis [Recovering/Resolving]
